FAERS Safety Report 4414249-5 (Version None)
Quarter: 2004Q3

REPORT INFORMATION
  Report Type: 
  Country: None (occurrence: None)
  Receive Date: 20040729
  Receipt Date: 20040713
  Transmission Date: 20050211
  Serious: Yes (Hospitalization)
  Sender: FDA-Public Use
  Company Number: DSA_24694_2004

PATIENT
  Age: 89 Year
  Sex: Female

DRUGS (2)
  1. DILTIAZEM HCL [Suspect]
     Indication: CARDIAC FAILURE
     Dosage: 90 MG Q DAY PO
     Route: 048
  2. DIGOXIN [Suspect]
     Indication: CARDIAC FAILURE
     Dosage: 0.25 MG Q DAY PO
     Route: 048

REACTIONS (2)
  - DYSPNOEA [None]
  - SINUS BRADYCARDIA [None]
